FAERS Safety Report 15904839 (Version 1)
Quarter: 2019Q1

REPORT INFORMATION
  Report Type: Spontaneous
  Country: DE (occurrence: DE)
  Receive Date: 20190204
  Receipt Date: 20190204
  Transmission Date: 20190417
  Serious: Yes (Congenital Anomaly)
  Sender: FDA-Public Use
  Company Number: DE-ACCORD-105418

PATIENT

DRUGS (10)
  1. PROMETHAZINE [Concomitant]
     Active Substance: PROMETHAZINE\PROMETHAZINE HYDROCHLORIDE
     Indication: RESTLESSNESS
     Route: 064
  2. DEKRISTOL [Concomitant]
     Active Substance: CHOLECALCIFEROL
     Indication: VITAMIN D DEFICIENCY
     Dosage: 20000 IE/EVERY 4TH DAY
     Route: 064
     Dates: start: 20170202, end: 20170411
  3. MOCLOBEMIDE [Concomitant]
     Active Substance: MOCLOBEMIDE
     Indication: DEPRESSION
     Dosage: 600 MG/D
     Route: 064
     Dates: start: 20170119, end: 20170220
  4. CYTOTEC [Concomitant]
     Active Substance: MISOPROSTOL
     Indication: ABORTION INDUCED
     Route: 064
  5. QUETIAPINE. [Suspect]
     Active Substance: QUETIAPINE
     Indication: DEPRESSION
     Dosage: 100 MG/D
     Route: 064
  6. PARACETAMOL [Concomitant]
     Active Substance: ACETAMINOPHEN
     Indication: HEADACHE
     Dosage: 500 MG/D / IF REQUIRED
     Route: 064
  7. CITALOPRAM [Suspect]
     Active Substance: CITALOPRAM HYDROBROMIDE
     Indication: DEPRESSION
     Dosage: 20 MG/D
     Route: 064
     Dates: start: 20170221, end: 20170411
  8. FOLSAN [Concomitant]
     Active Substance: FOLIC ACID
     Indication: PROPHYLAXIS OF NEURAL TUBE DEFECT
     Route: 064
  9. JATROSOM [Concomitant]
     Active Substance: TRANYLCYPROMINE SULFATE\TRIFLUOPERAZINE HYDROCHLORIDE
     Indication: DEPRESSION
     Dosage: 10 MG/D
     Route: 064
     Dates: start: 20170119, end: 20170219
  10. SALOFALK [Concomitant]
     Active Substance: MESALAMINE
     Indication: CROHN^S DISEASE
     Dosage: 3000 MG/D
     Route: 064

REACTIONS (4)
  - Exomphalos [Not Recovered/Not Resolved]
  - Amniotic band syndrome [Not Recovered/Not Resolved]
  - Limb reduction defect [Not Recovered/Not Resolved]
  - Foetal exposure during pregnancy [Unknown]
